FAERS Safety Report 21606342 (Version 1)
Quarter: 2022Q4

REPORT INFORMATION
  Report Type: Report from Study
  Country: US (occurrence: US)
  Receive Date: 20221117
  Receipt Date: 20221117
  Transmission Date: 20230113
  Serious: Yes (Other)
  Sender: FDA-Public Use
  Company Number: US-ABBVIE-4203901

PATIENT
  Age: 67 Year
  Sex: Male

DRUGS (1)
  1. IMBRUVICA [Suspect]
     Active Substance: IBRUTINIB
     Indication: Chronic graft versus host disease
     Route: 048
     Dates: start: 201612, end: 201703

REACTIONS (5)
  - Stem cell transplant [Recovered/Resolved]
  - Hypophagia [Recovered/Resolved]
  - Diarrhoea [Recovered/Resolved]
  - Seizure [Recovered/Resolved]
  - Blood urine present [Recovered/Resolved]

NARRATIVE: CASE EVENT DATE: 20171201
